FAERS Safety Report 8018486-2 (Version None)
Quarter: 2012Q1

REPORT INFORMATION
  Report Type: 
  Country: None (occurrence: None)
  Receive Date: 20120103
  Receipt Date: 20111228
  Transmission Date: 20120608
  Serious: Yes (Death)
  Sender: FDA-Public Use
  Company Number: US-ASTELLAS-2011US008753

PATIENT
  Sex: Male
  Weight: 86 kg

DRUGS (1)
  1. PROGRAF [Suspect]
     Indication: RENAL TRANSPLANT
     Dosage: 2 MG, BID
     Route: 048

REACTIONS (4)
  - ARRHYTHMIA [None]
  - RENAL TRANSPLANT [None]
  - HYPERTENSION [None]
  - CORONARY ARTERY DISEASE [None]
